FAERS Safety Report 5133310-3 (Version None)
Quarter: 2006Q4

REPORT INFORMATION
  Report Type: 
  Country: None (occurrence: None)
  Receive Date: 20060831
  Receipt Date: 20060606
  Transmission Date: 20070319
  Serious: No
  Sender: FDA-Public Use
  Company Number: 2006-BP-03677BP

PATIENT
  Age: 76 Year
  Sex: Female

DRUGS (9)
  1. SPIRIVA [Suspect]
     Indication: CHRONIC OBSTRUCTIVE PULMONARY DISEASE
     Dosage: 18 MCG (18 MCG,QD),IH
     Dates: start: 20060101
  2. SPIRIVA [Suspect]
     Indication: EMPHYSEMA
     Dosage: 18 MCG (18 MCG,QD),IH
     Dates: start: 20060101
  3. WELLBUTRIN [Concomitant]
  4. CYMBALTA [Concomitant]
  5. PRILOSEC [Concomitant]
  6. EVISTA [Concomitant]
  7. DITROPAN [Concomitant]
  8. OMEPRAZOLE [Concomitant]
  9. MIACALCIN [Concomitant]

REACTIONS (1)
  - DRUG INEFFECTIVE [None]
